FAERS Safety Report 9226639 (Version 2)
Quarter: 2013Q2

REPORT INFORMATION
  Report Type: Spontaneous
  Country: US (occurrence: US)
  Receive Date: 20130412
  Receipt Date: 20130524
  Transmission Date: 20140414
  Serious: Yes (Other)
  Sender: FDA-Public Use
  Company Number: US-PFIZER INC-2013113214

PATIENT
  Age: 52 Year
  Sex: Male
  Weight: 81.63 kg

DRUGS (5)
  1. PRISTIQ [Suspect]
     Indication: DEPRESSION
     Dosage: 50 MG, 1X/DAY
     Dates: start: 201202
  2. PRISTIQ [Suspect]
     Indication: ANXIETY
     Dosage: 50 MG, 1X/DAY
     Route: 048
     Dates: start: 20120514
  3. FLEXERIL [Concomitant]
     Indication: OSTEOARTHRITIS
     Dosage: 10 MG, 2X/DAY
  4. NORCO [Concomitant]
     Indication: OSTEOARTHRITIS
     Dosage: HYDROCODONE BITARTRAATE 10/PARACETAMOL 325, 4X/DAY
  5. XANAX [Concomitant]
     Dosage: 1 MG, 3X/DAY

REACTIONS (3)
  - Drug withdrawal syndrome [Not Recovered/Not Resolved]
  - Anxiety [Not Recovered/Not Resolved]
  - Depression [Not Recovered/Not Resolved]
